FAERS Safety Report 15633908 (Version 2)
Quarter: 2018Q4

REPORT INFORMATION
  Report Type: Spontaneous
  Country: DK (occurrence: DK)
  Receive Date: 20181119
  Receipt Date: 20181119
  Transmission Date: 20190205
  Serious: Yes (Death, Life-Threatening)
  Sender: FDA-Public Use
  Company Number: DK-PFIZER INC-2018468639

PATIENT
  Age: 50 Year
  Sex: Female
  Weight: 65 kg

DRUGS (3)
  1. FRAGMIN [Suspect]
     Active Substance: DALTEPARIN SODIUM
     Indication: THROMBOSIS
     Dosage: 12500 IU, 1X/DAY
     Route: 058
     Dates: start: 20180926, end: 20181004
  2. VINORELBINE [Concomitant]
     Active Substance: VINORELBINE\VINORELBINE TARTRATE
     Dosage: 50% DOSE
     Dates: start: 20181017
  3. XARELTO [Concomitant]
     Active Substance: RIVAROXABAN
     Dosage: 30 MG, 1X/DAY
     Route: 048
     Dates: start: 20181005

REACTIONS (3)
  - Heparin-induced thrombocytopenia [Fatal]
  - Multiple organ dysfunction syndrome [Fatal]
  - Fatigue [Fatal]

NARRATIVE: CASE EVENT DATE: 201810
